FAERS Safety Report 25133841 (Version 4)
Quarter: 2025Q3

REPORT INFORMATION
  Report Type: Report from Study
  Country: US (occurrence: US)
  Receive Date: 20250328
  Receipt Date: 20250703
  Transmission Date: 20251021
  Serious: Yes (Hospitalization, Other)
  Sender: INSMED
  Company Number: US-INSMED-2024-04146-USAA

PATIENT
  Sex: Female

DRUGS (2)
  1. ARIKAYCE [Suspect]
     Active Substance: AMIKACIN
     Indication: Atypical mycobacterial infection
     Dosage: 590 MILLIGRAM, QD
     Route: 055
     Dates: start: 20241015, end: 20250102
  2. ARIKAYCE [Suspect]
     Active Substance: AMIKACIN
     Dosage: 590 MILLIGRAM, QD
     Route: 055
     Dates: start: 20250121, end: 2025

REACTIONS (13)
  - Toxicity to various agents [Unknown]
  - Cardiac failure [Recovering/Resolving]
  - Hepatic failure [Recovering/Resolving]
  - Renal failure [Not Recovered/Not Resolved]
  - Systemic lupus erythematosus [Recovering/Resolving]
  - Thrombosis [Unknown]
  - Respiratory failure [Recovering/Resolving]
  - Bedridden [Unknown]
  - Cough [Recovered/Resolved]
  - Productive cough [Unknown]
  - Aphonia [Recovered/Resolved]
  - Aphonia [Not Recovered/Not Resolved]
  - Therapy interrupted [Unknown]

NARRATIVE: CASE EVENT DATE: 20240101
